FAERS Safety Report 10195739 (Version 1)
Quarter: 2014Q2

REPORT INFORMATION
  Report Type: Spontaneous
  Country: FR (occurrence: FR)
  Receive Date: 20140527
  Receipt Date: 20140527
  Transmission Date: 20141212
  Serious: Yes (Other)
  Sender: FDA-Public Use
  Company Number: FR-BRISTOL-MYERS SQUIBB COMPANY-20797627

PATIENT
  Age: 65 Year
  Sex: Female
  Weight: 56 kg

DRUGS (9)
  1. METFORMIN HCL [Suspect]
     Dosage: TOTAL: 300MG
     Route: 048
  2. APROVEL [Suspect]
     Route: 048
  3. LEVOTHYROX [Suspect]
     Dosage: SCORED TABLET
     Route: 048
  4. UROXATRAL [Suspect]
     Route: 048
     Dates: start: 20140106
  5. IMOVANE [Suspect]
     Dosage: FILM COATED TAB
     Route: 048
  6. ATARAX [Suspect]
     Dosage: TOTAL: 50MG.?FILM-COATED TAB
     Route: 048
  7. SEROPLEX [Suspect]
     Dosage: FILM COATED TAB
     Route: 048
  8. KARDEGIC [Suspect]
     Dosage: POWDER FOR ORAL SOLUTION.?SACHET
     Route: 048
  9. CRESTOR [Suspect]
     Route: 048

REACTIONS (4)
  - Fatigue [Recovering/Resolving]
  - Nasal congestion [Recovering/Resolving]
  - Nausea [Recovering/Resolving]
  - Dyspepsia [Recovering/Resolving]
